FAERS Safety Report 4590253-1 (Version None)
Quarter: 2005Q1

REPORT INFORMATION
  Report Type: 
  Country: None (occurrence: None)
  Receive Date: 20050217
  Receipt Date: 20050204
  Transmission Date: 20050727
  Serious: Yes (Life-Threatening, Hospitalization)
  Sender: FDA-Public Use
  Company Number: HQWYE137307FEB05

PATIENT
  Age: 4 Year
  Sex: Male

DRUGS (4)
  1. CHILDREN'S ADVIL [Suspect]
     Indication: PHARYNGITIS
     Dosage: ORAL
     Route: 048
     Dates: start: 20031128, end: 20031203
  2. CHILDREN'S ADVIL [Suspect]
     Indication: RHINITIS
     Dosage: ORAL
     Route: 048
     Dates: start: 20031128, end: 20031203
  3. ACETAMINOPHEN [Suspect]
     Indication: PHARYNGITIS
     Dosage: UNKNOWN
     Route: 065
     Dates: start: 20031128, end: 20031203
  4. ACETAMINOPHEN [Suspect]
     Indication: RHINITIS
     Dosage: UNKNOWN
     Route: 065
     Dates: start: 20031128, end: 20031203

REACTIONS (20)
  - ABASIA [None]
  - ASPARTATE AMINOTRANSFERASE INCREASED [None]
  - BLOOD BILIRUBIN INCREASED [None]
  - BLOOD CREATININE INCREASED [None]
  - BLOOD UREA INCREASED [None]
  - CHEILITIS [None]
  - COLOSTOMY [None]
  - CONJUNCTIVITIS [None]
  - GAMMA-GLUTAMYLTRANSFERASE INCREASED [None]
  - HAEMOGLOBIN DECREASED [None]
  - HYPONATRAEMIA [None]
  - LOCAL SWELLING [None]
  - MYALGIA [None]
  - NECROTISING FASCIITIS [None]
  - PETECHIAE [None]
  - PLATELET COUNT DECREASED [None]
  - PROTEIN TOTAL ABNORMAL [None]
  - RASH SCARLATINIFORM [None]
  - TOXIC SHOCK SYNDROME STREPTOCOCCAL [None]
  - ULTRASOUND SCAN ABNORMAL [None]
